FAERS Safety Report 6906744-1 (Version None)
Quarter: 2010Q3

REPORT INFORMATION
  Report Type: 
  Country: None (occurrence: None)
  Receive Date: 20100804
  Receipt Date: 20100726
  Transmission Date: 20110219
  Serious: Yes (Other)
  Sender: FDA-Public Use
  Company Number: US-TEVA-242637USA

PATIENT
  Age: 51 Year
  Sex: Male

DRUGS (10)
  1. ROPINIROLE TABLETS 0.25MG, 0.5MG, 1MG, 2MG, 3MG, 4MG, 5MG (BASE) [Suspect]
     Indication: PARKINSON'S DISEASE
     Dates: start: 20060401
  2. LEVODOPA [Suspect]
  3. ENTACAPONE [Suspect]
  4. METAXALONE [Concomitant]
  5. FENTANYL CITRATE [Concomitant]
  6. HYDROMORPHONE [Concomitant]
  7. PAROXETINE HCL [Concomitant]
     Indication: DEPRESSION
     Dates: start: 20030101
  8. PAROXETINE HCL [Concomitant]
     Indication: ANXIETY
  9. LORAZEPAM [Concomitant]
     Indication: DEPRESSION
     Dates: start: 20030101
  10. LORAZEPAM [Concomitant]
     Indication: ANXIETY

REACTIONS (1)
  - DERMATILLOMANIA [None]
